APPROVED DRUG PRODUCT: LINDANE
Active Ingredient: LINDANE
Strength: 1%
Dosage Form/Route: SHAMPOO;TOPICAL
Application: A088191 | Product #001
Applicant: WOCKHARDT BIO AG
Approved: Sep 18, 1984 | RLD: No | RS: No | Type: DISCN